FAERS Safety Report 10363990 (Version 2)
Quarter: 2014Q3

REPORT INFORMATION
  Report Type: Spontaneous
  Country: DE (occurrence: DE)
  Receive Date: 20140805
  Receipt Date: 20140901
  Transmission Date: 20150326
  Serious: Yes (Hospitalization, Other)
  Sender: FDA-Public Use
  Company Number: PHHY2014DE093611

PATIENT
  Age: 1 Day
  Sex: Male

DRUGS (2)
  1. RITALIN [Suspect]
     Active Substance: METHYLPHENIDATE HYDROCHLORIDE
     Dosage: (MATERNAL DOSE:UNKNOWN)
     Route: 064
  2. PRESINOL [Suspect]
     Active Substance: METHYLDOPA
     Dosage: (MATERNAL DOSE: 125 MG, QID)
     Route: 064

REACTIONS (2)
  - Bradycardia neonatal [Recovered/Resolved]
  - Respiratory disorder neonatal [Recovered/Resolved]

NARRATIVE: CASE EVENT DATE: 20130619
